FAERS Safety Report 15048003 (Version 3)
Quarter: 2019Q1

REPORT INFORMATION
  Report Type: Spontaneous
  Country: FR (occurrence: FR)
  Receive Date: 20180622
  Receipt Date: 20190211
  Transmission Date: 20190417
  Serious: Yes (Hospitalization, Other)
  Sender: FDA-Public Use
  Company Number: FR-SUN PHARMACEUTICAL INDUSTRIES LTD-2018RR-176364

PATIENT
  Age: 60 Year
  Sex: Male

DRUGS (21)
  1. AMLODIPINE [Suspect]
     Active Substance: AMLODIPINE BESYLATE
     Indication: HYPERTENSION
     Dosage: 10 MG, DAILY
     Route: 048
     Dates: start: 20180509
  2. ZOLPIDEM [Suspect]
     Active Substance: ZOLPIDEM\ZOLPIDEM TARTRATE
     Indication: PRODUCT USED FOR UNKNOWN INDICATION
     Dosage: 5 MILLIGRAM
     Route: 065
     Dates: start: 20180419
  3. TRISENOX [Suspect]
     Active Substance: ARSENIC TRIOXIDE
     Dosage: 12.75 MILLIGRAM
     Route: 042
     Dates: start: 20180522
  4. TRISENOX [Suspect]
     Active Substance: ARSENIC TRIOXIDE
     Dosage: 12.75 UNK
     Route: 042
     Dates: start: 20180518, end: 20180521
  5. VESANOID [Suspect]
     Active Substance: TRETINOIN
     Indication: ACUTE MYELOID LEUKAEMIA
     Dosage: 90 MG, DAILY
     Route: 048
     Dates: start: 20180411, end: 20180420
  6. ALPRAZOLAM MYLAN 0,25 MG, COMPRIME SECABLE [Suspect]
     Active Substance: ALPRAZOLAM
     Indication: ANXIETY
     Dosage: 0.75 MG, DAILY
     Route: 048
     Dates: start: 20180512
  7. CETIRIZINE [Suspect]
     Active Substance: CETIRIZINE HYDROCHLORIDE
     Indication: URTICARIA
     Dosage: 10 MG, DAILY
     Route: 048
     Dates: start: 20180414, end: 20180423
  8. PANTOPRAZOLE MYLAN [Suspect]
     Active Substance: PANTOPRAZOLE SODIUM
     Indication: ABDOMINAL PAIN UPPER
     Dosage: 20 MG, DAILY
     Route: 048
     Dates: start: 20180424, end: 20180519
  9. BACTRIM [Suspect]
     Active Substance: SULFAMETHOXAZOLE\TRIMETHOPRIM
     Indication: PRODUCT USED FOR UNKNOWN INDICATION
     Dosage: 800MG/160MG FOR 7 DAYS
     Route: 048
     Dates: start: 20180411, end: 20180419
  10. ZELITREX [Suspect]
     Active Substance: VALACYCLOVIR HYDROCHLORIDE
     Indication: ANTIVIRAL PROPHYLAXIS
     Dosage: 500 MG, DAILY
     Route: 048
     Dates: start: 20180411
  11. TAZOCILLINE [Suspect]
     Active Substance: PIPERACILLIN SODIUM\TAZOBACTAM SODIUM
     Indication: FEBRILE BONE MARROW APLASIA
     Dosage: 16 G, DAILY
     Route: 042
     Dates: start: 20180413
  12. FLUCONAZOLE. [Suspect]
     Active Substance: FLUCONAZOLE
     Indication: PRODUCT USED FOR UNKNOWN INDICATION
     Dosage: UNK
     Route: 042
     Dates: start: 20160411
  13. PANTOPRAZOLE [Suspect]
     Active Substance: PANTOPRAZOLE
     Indication: ABDOMINAL PAIN UPPER
     Dosage: 20 MILLIGRAM, QD
     Route: 048
     Dates: start: 20180424, end: 20180519
  14. TRISENOX [Suspect]
     Active Substance: ARSENIC TRIOXIDE
     Indication: ACUTE MYELOID LEUKAEMIA
     Dosage: J1 A J5 / CURE ; CYCLICAL
     Route: 042
     Dates: start: 20180411, end: 20180526
  15. TRISENOX [Suspect]
     Active Substance: ARSENIC TRIOXIDE
     Dosage: 12.75 UNK
     Route: 042
     Dates: start: 20180511, end: 20180515
  16. VESANOID [Suspect]
     Active Substance: TRETINOIN
     Dosage: 90 MILLIGRAM, DAILY
     Route: 048
     Dates: start: 20180905
  17. TRISENOX [Suspect]
     Active Substance: ARSENIC TRIOXIDE
     Dosage: 12.75 MILLIGRAM
     Route: 042
     Dates: start: 20180411, end: 20180419
  18. CANCIDAS [Suspect]
     Active Substance: CASPOFUNGIN ACETATE
     Indication: FEBRILE BONE MARROW APLASIA
     Dosage: 70 MG, DAILY
     Route: 042
     Dates: start: 20180503
  19. HYDREA [Suspect]
     Active Substance: HYDROXYUREA
     Indication: PRODUCT USED FOR UNKNOWN INDICATION
     Dosage: UNK
     Route: 065
     Dates: start: 20180421, end: 20180427
  20. ALPRAZOLAM. [Suspect]
     Active Substance: ALPRAZOLAM
     Indication: ANXIETY
     Dosage: 0.25 MILLIGRAM, QD
     Route: 048
  21. LINEZOLIDE ARROW [Suspect]
     Active Substance: LINEZOLID
     Indication: FEBRILE BONE MARROW APLASIA
     Dosage: 600 MG, BID
     Route: 042
     Dates: start: 20180503, end: 20180517

REACTIONS (6)
  - Hypokalaemia [Unknown]
  - Urticaria [Unknown]
  - Hyperleukocytosis [Unknown]
  - Differentiation syndrome [Unknown]
  - Electrocardiogram QT prolonged [Recovered/Resolved]
  - Hypomagnesaemia [Unknown]

NARRATIVE: CASE EVENT DATE: 20180420
